FAERS Safety Report 9258925 (Version 1)
Quarter: 2013Q2

REPORT INFORMATION
  Report Type: Spontaneous
  Country: JP (occurrence: JP)
  Receive Date: 20130426
  Receipt Date: 20130426
  Transmission Date: 20140414
  Serious: Yes (Life-Threatening, Hospitalization)
  Sender: FDA-Public Use
  Company Number: JP-GLAXOSMITHKLINE-B0882105A

PATIENT
  Age: 68 Year
  Sex: Female

DRUGS (5)
  1. ZANTAC [Suspect]
     Indication: GASTRITIS
     Dosage: 100MG PER DAY
     Route: 042
     Dates: start: 20130404, end: 20130404
  2. GRANISETRON [Concomitant]
     Indication: PROPHYLAXIS
     Dosage: 3MG PER DAY
     Route: 042
     Dates: start: 20130404, end: 20130404
  3. DECADRON [Concomitant]
     Indication: PROPHYLAXIS
     Dosage: 8MG PER DAY
     Route: 042
     Dates: start: 20130404, end: 20130404
  4. GASTER D [Concomitant]
     Indication: GASTRITIS
     Dosage: 20MG TWICE PER DAY
     Route: 048
     Dates: start: 20130404, end: 20130404
  5. MUCOSTA [Concomitant]
     Indication: GASTRITIS
     Dosage: 100MG TWICE PER DAY
     Route: 048
     Dates: start: 20130404, end: 20130404

REACTIONS (9)
  - Anaphylactic reaction [Recovering/Resolving]
  - Altered state of consciousness [Recovering/Resolving]
  - Shock [Recovering/Resolving]
  - Acute respiratory failure [Recovering/Resolving]
  - Pruritus [Recovering/Resolving]
  - Vomiting [Recovering/Resolving]
  - Cyanosis [Recovering/Resolving]
  - Nausea [Recovering/Resolving]
  - Diarrhoea [Recovering/Resolving]
